FAERS Safety Report 19997399 (Version 2)
Quarter: 2021Q4

REPORT INFORMATION
  Report Type: Spontaneous
  Country: GB (occurrence: GB)
  Receive Date: 20211026
  Receipt Date: 20211104
  Transmission Date: 20220303
  Serious: Yes (Other)
  Sender: FDA-Public Use
  Company Number: GB-002147023-NVSC2021GB230576

PATIENT
  Age: 49 Year
  Sex: Male

DRUGS (5)
  1. METHOTREXATE SODIUM [Suspect]
     Active Substance: METHOTREXATE SODIUM
     Indication: Psoriasis
     Dosage: 15 MG, WEEKLY
     Route: 065
  2. METHOTREXATE SODIUM [Suspect]
     Active Substance: METHOTREXATE SODIUM
     Dosage: 20 MG
     Route: 065
  3. COSENTYX [Suspect]
     Active Substance: SECUKINUMAB
     Indication: Psoriasis
     Dosage: 300 MG, MONTHLY
     Route: 058
     Dates: start: 201711
  4. COSENTYX [Suspect]
     Active Substance: SECUKINUMAB
     Dosage: 300 MG, MONTHLY
     Route: 058
     Dates: start: 202011
  5. LAMIVUDINE [Concomitant]
     Active Substance: LAMIVUDINE
     Indication: Hepatitis B reactivation
     Dosage: 100 MG, 1X/DAY
     Route: 065

REACTIONS (3)
  - Post inflammatory pigmentation change [Unknown]
  - Immune thrombocytopenia [Unknown]
  - Arthralgia [Unknown]
